FAERS Safety Report 6093281-2 (Version None)
Quarter: 2009Q1

REPORT INFORMATION
  Report Type: 
  Country: None (occurrence: None)
  Receive Date: 20090226
  Receipt Date: 20090211
  Transmission Date: 20090719
  Serious: Yes (Life-Threatening, Hospitalization)
  Sender: FDA-Public Use
  Company Number: AU-AMGEN-US333842

PATIENT
  Sex: Male
  Weight: 75 kg

DRUGS (4)
  1. ENBREL [Suspect]
     Indication: ANKYLOSING SPONDYLITIS
     Dosage: 25MG 2 VIALS ONCE A WEEK
     Route: 058
     Dates: start: 20060701, end: 20090207
  2. LEXAPRO [Interacting]
     Dosage: 20MG
     Route: 065
     Dates: start: 20081201
  3. VALPROATE SODIUM [Concomitant]
     Route: 065
  4. LITHIUM [Concomitant]
     Dosage: UNKNOWN
     Route: 065

REACTIONS (5)
  - DRUG INTERACTION [None]
  - HEADACHE [None]
  - MOUTH ULCERATION [None]
  - RESPIRATORY TRACT INFECTION [None]
  - THROMBOCYTOPENIA [None]
